FAERS Safety Report 5534568-9 (Version None)
Quarter: 2007Q4

REPORT INFORMATION
  Report Type: 
  Country: None (occurrence: None)
  Receive Date: 20071205
  Receipt Date: 20071126
  Transmission Date: 20080405
  Serious: Yes (Hospitalization)
  Sender: FDA-Public Use
  Company Number: US-WYE-H01416107

PATIENT
  Sex: Male
  Weight: 41.5 kg

DRUGS (2)
  1. TEMSIROLIMUS [Suspect]
     Indication: NEUROBLASTOMA
     Route: 042
     Dates: start: 20071012
  2. LUGOL'S [Concomitant]
     Indication: PROPHYLAXIS
     Route: 048
     Dates: start: 20071119

REACTIONS (3)
  - HYPOTENSION [None]
  - INFECTION [None]
  - PYREXIA [None]
